FAERS Safety Report 6322501-1 (Version None)
Quarter: 2009Q3

REPORT INFORMATION
  Report Type: 
  Country: None (occurrence: None)
  Receive Date: 20090824
  Receipt Date: 20090310
  Transmission Date: 20100115
  Serious: No
  Sender: FDA-Public Use
  Company Number: US-ABBOTT-09P-163-0559409-00

PATIENT
  Sex: Female

DRUGS (5)
  1. NIASPAN [Suspect]
     Indication: BLOOD CHOLESTEROL INCREASED
     Dates: start: 20080901, end: 20090306
  2. MULTI-VITAMINS [Concomitant]
     Indication: VITAMIN SUPPLEMENTATION
     Dosage: TOOK AT SAME TIME AS NIASPAN
  3. ASPIRIN [Concomitant]
     Indication: PROPHYLAXIS
     Dosage: 3 TABLETS WITH NIASPAN
     Dates: start: 20080901, end: 20090222
  4. ASPIRIN [Concomitant]
     Dosage: TOOK ADDITIONAL 3 (81 )MG TABS TWICE
     Dates: start: 20090222, end: 20090222
  5. ASPIRIN [Concomitant]
     Dosage: 5 TABLETS WITH THE NIASPAN (5 IN 1 DAY)
     Dates: start: 20090201, end: 20090306

REACTIONS (4)
  - FLUSHING [None]
  - MIDDLE INSOMNIA [None]
  - PRURITUS [None]
  - SKIN BURNING SENSATION [None]
